FAERS Safety Report 14302002 (Version 1)
Quarter: 2017Q4

REPORT INFORMATION
  Report Type: Spontaneous
  Country: US (occurrence: US)
  Receive Date: 20171218
  Receipt Date: 20171218
  Transmission Date: 20180321
  Serious: Yes (Other)
  Sender: FDA-Public Use
  Company Number: None

PATIENT
  Age: 47 Year
  Sex: Female

DRUGS (1)
  1. BENLYSTA [Suspect]
     Active Substance: BELIMUMAB
     Indication: SYSTEMIC LUPUS ERYTHEMATOSUS
     Dosage: 1,010MG EVERY 4 WEEKS INTRAVENOUSLY
     Route: 042
     Dates: start: 201704, end: 201712

REACTIONS (1)
  - Depression [None]

NARRATIVE: CASE EVENT DATE: 201712
